FAERS Safety Report 11291345 (Version 1)
Quarter: 2015Q3

REPORT INFORMATION
  Report Type: Spontaneous
  Country: US (occurrence: None)
  Receive Date: 20150720
  Receipt Date: 20150720
  Transmission Date: 20151125
  Serious: Yes (Hospitalization, Other)
  Sender: FDA-Public Use
  Company Number: 1718912-2015-00005

PATIENT
  Age: 78 Year
  Sex: Male

DRUGS (6)
  1. BIOTENE (PASTE) [Suspect]
     Active Substance: SODIUM MONOFLUOROPHOSPHATE
  2. BIOTENE FRESH MINT ORIGINAL (SODIUM FLUORIDE) [Suspect]
     Active Substance: SODIUM FLUORIDE
     Route: 004
  3. WARFARIN (WARFARIN) [Concomitant]
     Active Substance: WARFARIN
  4. BIOTENE (PASTE) [Suspect]
     Active Substance: SODIUM MONOFLUOROPHOSPHATE
  5. BIOTENE ORAL BALANCE [Suspect]
     Active Substance: XYLITOL
     Route: 004
  6. BIOTENE ORAL BALANCE GEL (2013 FORMULATION) [Suspect]
     Active Substance: XYLITOL
     Route: 004
     Dates: start: 2014

REACTIONS (6)
  - Cholecystectomy [None]
  - Dizziness [None]
  - Gallbladder disorder [None]
  - Haematochezia [None]
  - Pain [None]
  - Faeces discoloured [None]

NARRATIVE: CASE EVENT DATE: 201412
